FAERS Safety Report 22390843 (Version 4)
Quarter: 2023Q4

REPORT INFORMATION
  Report Type: Spontaneous
  Country: JP (occurrence: JP)
  Receive Date: 20230601
  Receipt Date: 20231030
  Transmission Date: 20240110
  Serious: Yes (Death, Disabling, Other)
  Sender: FDA-Public Use
  Company Number: JP-ONO-2023JP014037

PATIENT
  Age: 73 Year
  Sex: Male
  Weight: 59.1 kg

DRUGS (12)
  1. OPDIVO [Suspect]
     Active Substance: NIVOLUMAB
     Indication: Metastatic renal cell carcinoma
     Route: 041
     Dates: start: 20230120, end: 20230303
  2. OPDIVO [Suspect]
     Active Substance: NIVOLUMAB
     Dates: start: 20230203
  3. OPDIVO [Suspect]
     Active Substance: NIVOLUMAB
     Dates: start: 20230217
  4. OPDIVO [Suspect]
     Active Substance: NIVOLUMAB
     Dates: end: 20230303
  5. PREDNISOLONE [Suspect]
     Active Substance: PREDNISOLONE
     Indication: Mucocutaneous disorder
     Dates: start: 20230317, end: 20230323
  6. PREDNISOLONE [Suspect]
     Active Substance: PREDNISOLONE
     Dates: start: 20230324, end: 20230328
  7. PREDNISOLONE [Suspect]
     Active Substance: PREDNISOLONE
     Dates: start: 20230329
  8. PREDNISOLONE [Suspect]
     Active Substance: PREDNISOLONE
     Dates: start: 20230413, end: 20230418
  9. DENOSUMAB [Concomitant]
     Active Substance: DENOSUMAB
     Dates: start: 20221227
  10. CANDESARTAN [Concomitant]
     Active Substance: CANDESARTAN
     Dosage: ORAL DRUG UNSPECIFIED FORM
     Route: 048
     Dates: start: 20221227
  11. AMLODIPINE [Concomitant]
     Active Substance: AMLODIPINE BESYLATE
     Dosage: ORAL DRUG UNSPECIFIED FORM
     Route: 048
     Dates: start: 20221227
  12. CABOMETYX [Concomitant]
     Active Substance: CABOZANTINIB S-MALATE
     Indication: Renal cancer
     Dosage: ORAL DRUG UNSPECIFIED FORM
     Route: 048
     Dates: start: 20230119, end: 20230317

REACTIONS (2)
  - Pneumocystis jirovecii pneumonia [Fatal]
  - Cerebral infarction [Fatal]

NARRATIVE: CASE EVENT DATE: 20230418
